FAERS Safety Report 4831490-8 (Version None)
Quarter: 2005Q4

REPORT INFORMATION
  Report Type: 
  Country: None (occurrence: None)
  Receive Date: 20051118
  Receipt Date: 20051108
  Transmission Date: 20060501
  Serious: Yes (Hospitalization)
  Sender: FDA-Public Use
  Company Number: FR-JNJFOC-20050704971

PATIENT
  Age: 61 Year
  Sex: Male

DRUGS (4)
  1. REMICADE [Suspect]
     Indication: SPONDYLOARTHROPATHY
     Route: 042
  2. REMICADE [Suspect]
     Indication: RHEUMATOID ARTHRITIS
     Route: 042
  3. CORTANCYL [Concomitant]
     Route: 048
     Dates: start: 20020101
  4. NOVATREX [Concomitant]
     Route: 048

REACTIONS (3)
  - CAPNOCYTOPHAGIA INFECTION [None]
  - INTERSTITIAL LUNG DISEASE [None]
  - SEPTIC SHOCK [None]
